FAERS Safety Report 6773968-6 (Version None)
Quarter: 2010Q2

REPORT INFORMATION
  Report Type: 
  Country: None (occurrence: None)
  Receive Date: 20100617
  Receipt Date: 20100611
  Transmission Date: 20101027
  Serious: Yes (Death, Other)
  Sender: FDA-Public Use
  Company Number: CA-CELGENEUS-028-21880-10040169

PATIENT
  Sex: Female

DRUGS (3)
  1. REVLIMID [Suspect]
     Indication: MULTIPLE MYELOMA
     Route: 048
     Dates: start: 20090811, end: 20091216
  2. REVLIMID [Suspect]
     Route: 048
     Dates: start: 20081223, end: 20090301
  3. REVLIMID [Suspect]
     Route: 048
     Dates: start: 20090317, end: 20090801

REACTIONS (3)
  - MULTIPLE MYELOMA [None]
  - PLATELET COUNT DECREASED [None]
  - PNEUMONIA [None]
